FAERS Safety Report 9877908 (Version 2)
Quarter: 2014Q1

REPORT INFORMATION
  Report Type: Spontaneous
  Country: US (occurrence: None)
  Receive Date: 20140204
  Receipt Date: 20140228
  Transmission Date: 20141002
  Serious: Yes (Other)
  Sender: FDA-Public Use
  Company Number: 2014-US-000813

PATIENT
  Age: 52 Year
  Sex: Female

DRUGS (1)
  1. XYREM [Suspect]
     Indication: NARCOLEPSY
     Route: 048
     Dates: start: 201204, end: 2012

REACTIONS (8)
  - Addison^s disease [None]
  - Skin exfoliation [None]
  - Skin hypertrophy [None]
  - Muscle disorder [None]
  - Pituitary tumour benign [None]
  - Dry skin [None]
  - Laceration [None]
  - Jaw disorder [None]
